FAERS Safety Report 22340624 (Version 1)
Quarter: 2023Q2

REPORT INFORMATION
  Report Type: Report from Study
  Country: US (occurrence: US)
  Receive Date: 20230518
  Receipt Date: 20230518
  Transmission Date: 20230722
  Serious: Yes (Other)
  Sender: FDA-Public Use
  Company Number: US-ABBVIE-4331768

PATIENT
  Age: 63 Year
  Sex: Male

DRUGS (2)
  1. SYNTHROID [Suspect]
     Active Substance: LEVOTHYROXINE SODIUM
     Indication: Product used for unknown indication
     Route: 048
  2. TEPEZZA [Suspect]
     Active Substance: TEPROTUMUMAB-TRBW
     Indication: Endocrine ophthalmopathy
     Route: 065
     Dates: start: 20220112

REACTIONS (8)
  - Muscle spasms [Unknown]
  - Blood glucose increased [Unknown]
  - Fatigue [Unknown]
  - Peyronie^s disease [Unknown]
  - Alopecia [Unknown]
  - Swelling of eyelid [Unknown]
  - Therapeutic product effect incomplete [Unknown]
  - Deafness [Unknown]
